FAERS Safety Report 9411915 (Version 2)
Quarter: 2013Q3

REPORT INFORMATION
  Report Type: Spontaneous
  Country: US (occurrence: US)
  Receive Date: 20130722
  Receipt Date: 20130801
  Transmission Date: 20140515
  Serious: Yes (Death)
  Sender: FDA-Public Use
  Company Number: 2013SP005415

PATIENT
  Age: 9 Month
  Sex: Male

DRUGS (4)
  1. VANCOMYCIN [Suspect]
     Indication: PRODUCT USED FOR UNKNOWN INDICATION
  2. ZOSYN [Suspect]
     Indication: PRODUCT USED FOR UNKNOWN INDICATION
  3. EPINEPHRINE [Concomitant]
  4. HELIOX [Concomitant]

REACTIONS (5)
  - Pneumonia necrotising [Fatal]
  - Acute respiratory distress syndrome [Fatal]
  - Electrocardiogram T wave abnormal [Fatal]
  - Hyperkalaemia [Fatal]
  - Cardio-respiratory arrest [Fatal]
